FAERS Safety Report 24267471 (Version 1)
Quarter: 2024Q3

REPORT INFORMATION
  Report Type: Spontaneous
  Country: JP (occurrence: JP)
  Receive Date: 20240830
  Receipt Date: 20240830
  Transmission Date: 20241017
  Serious: Yes (Hospitalization, Other)
  Sender: ABBVIE
  Company Number: JP-ABBVIE-5896242

PATIENT
  Sex: Male

DRUGS (3)
  1. VENCLEXTA [Suspect]
     Active Substance: VENETOCLAX
     Indication: Acute leukaemia
     Route: 048
  2. VENCLEXTA [Suspect]
     Active Substance: VENETOCLAX
     Indication: Acute leukaemia
     Dosage: DOSE INCREASED FOUR TIMES THE AMOUNT
     Route: 048
     Dates: start: 202407
  3. AZACITIDINE [Concomitant]
     Active Substance: AZACITIDINE
     Indication: Acute leukaemia

REACTIONS (15)
  - Myelosuppression [Unknown]
  - Immobilisation syndrome [Recovered/Resolved]
  - Dizziness [Unknown]
  - Refractoriness to platelet transfusion [Unknown]
  - Discouragement [Unknown]
  - Near death experience [Unknown]
  - Platelet count decreased [Unknown]
  - Headache [Unknown]
  - Constipation [Unknown]
  - Nausea [Unknown]
  - Infection [Unknown]
  - Stress [Unknown]
  - Hospitalisation [Unknown]
  - Splenomegaly [Unknown]
  - Feeding disorder [Recovered/Resolved]

NARRATIVE: CASE EVENT DATE: 20240101
